FAERS Safety Report 24656513 (Version 1)
Quarter: 2024Q4

REPORT INFORMATION
  Report Type: Spontaneous
  Country: US (occurrence: US)
  Receive Date: 20241124
  Receipt Date: 20241124
  Transmission Date: 20250115
  Serious: No
  Sender: AMGEN
  Company Number: US-AMGEN-USASP2024228384

PATIENT
  Age: 78 Year
  Sex: Female

DRUGS (9)
  1. REPATHA [Suspect]
     Active Substance: EVOLOCUMAB
     Indication: Type IIa hyperlipidaemia
     Dosage: 140 MILLIGRAM, Q2WK
     Route: 058
  2. ESTROGENS [Concomitant]
     Active Substance: ESTROGENS
     Indication: Postmenopause
  3. LEVOTHYROXINE [Concomitant]
     Active Substance: LEVOTHYROXINE
     Indication: Hypothyroidism
  4. FOSAMAX [Concomitant]
     Active Substance: ALENDRONATE SODIUM
     Indication: Osteoporosis
  5. VITAMIN C [Concomitant]
     Active Substance: ASCORBIC ACID
  6. VITAMIN A [Concomitant]
     Active Substance: VITAMIN A
  7. NIACIN [Concomitant]
     Active Substance: NIACIN
     Indication: Cardiac disorder
  8. CALCIUM [Concomitant]
     Active Substance: CALCIUM
     Indication: Osteoporosis
  9. MAGNESIUM [Concomitant]
     Active Substance: MAGNESIUM
     Indication: Osteoporosis

REACTIONS (6)
  - Fatigue [Not Recovered/Not Resolved]
  - Limb discomfort [Not Recovered/Not Resolved]
  - Muscle tightness [Not Recovered/Not Resolved]
  - Myalgia [Not Recovered/Not Resolved]
  - Muscle spasms [Not Recovered/Not Resolved]
  - Device difficult to use [Unknown]

NARRATIVE: CASE EVENT DATE: 20241001
